FAERS Safety Report 7303497-2 (Version None)
Quarter: 2011Q1

REPORT INFORMATION
  Report Type: 
  Country: None (occurrence: None)
  Receive Date: 20110221
  Receipt Date: 20110215
  Transmission Date: 20110831
  Serious: Yes (Death, Hospitalization)
  Sender: FDA-Public Use
  Company Number: PHHY2011SK11163

PATIENT
  Sex: Female

DRUGS (7)
  1. PREDUCTAL [Concomitant]
  2. VITAMIN D [Concomitant]
  3. PRESTARIUM [Concomitant]
  4. CINACALCET [Concomitant]
     Dosage: TWICE A DAY
     Dates: start: 20110209
  5. ACLASTA [Suspect]
     Indication: OSTEOPOROSIS POSTMENOPAUSAL
     Dosage: UNK
     Route: 042
     Dates: start: 20110209
  6. PK-MERZ [Concomitant]
  7. ANOPYRIN [Concomitant]

REACTIONS (13)
  - RENAL FAILURE CHRONIC [None]
  - EMBOLISM ARTERIAL [None]
  - MALAISE [None]
  - COMA [None]
  - CARDIOPULMONARY FAILURE [None]
  - CARDIAC FAILURE [None]
  - ARTERIOSCLEROSIS [None]
  - DYSPNOEA [None]
  - HYPOTENSION [None]
  - CARDIAC DISORDER [None]
  - CHILLS [None]
  - BRONCHOPNEUMONIA [None]
  - RENAL FAILURE [None]
